FAERS Safety Report 5782892-7 (Version None)
Quarter: 2008Q2

REPORT INFORMATION
  Report Type: 
  Country: None (occurrence: None)
  Receive Date: 20080620
  Receipt Date: 20080620
  Transmission Date: 20081010
  Serious: No
  Sender: FDA-Public Use
  Company Number: None

PATIENT
  Sex: Female
  Weight: 66.2252 kg

DRUGS (4)
  1. CATAPRES [Suspect]
     Indication: ATTENTION DEFICIT/HYPERACTIVITY DISORDER
     Dosage: 0.1MG ONE BID TWO HS PO GENERIC WAS ATTEMPTED APPROX 3 YRS AGO
     Route: 048
  2. CATAPRES [Suspect]
     Indication: AUTISM
     Dosage: 0.1MG ONE BID TWO HS PO GENERIC WAS ATTEMPTED APPROX 3 YRS AGO
     Route: 048
  3. CATAPRES [Suspect]
     Indication: IMPULSIVE BEHAVIOUR
     Dosage: 0.1MG ONE BID TWO HS PO GENERIC WAS ATTEMPTED APPROX 3 YRS AGO
     Route: 048
  4. CATAPRES [Suspect]
     Indication: INTERMITTENT EXPLOSIVE DISORDER
     Dosage: 0.1MG ONE BID TWO HS PO GENERIC WAS ATTEMPTED APPROX 3 YRS AGO
     Route: 048

REACTIONS (6)
  - ABNORMAL BEHAVIOUR [None]
  - AGITATION [None]
  - ANXIETY [None]
  - DRUG INEFFECTIVE [None]
  - PERSONALITY CHANGE [None]
  - THERAPEUTIC RESPONSE UNEXPECTED WITH DRUG SUBSTITUTION [None]
